FAERS Safety Report 8789179 (Version 1)
Quarter: 2012Q4

REPORT INFORMATION
  Report Type: Spontaneous
  Country: US (occurrence: None)
  Receive Date: 20120904
  Receipt Date: 20120904
  Transmission Date: 20130627
  Serious: Yes (Life-Threatening)
  Sender: FDA-Public Use
  Company Number: 100406-000155

PATIENT
  Sex: Female

DRUGS (3)
  1. PROACTIV RENEWING CLEANSER [Suspect]
     Indication: ACNE
     Route: 061
     Dates: start: 20100315, end: 20100316
  2. PROACTIV REPAIRING TREATMENT [Suspect]
     Indication: ACNE
     Route: 061
     Dates: start: 20100315, end: 20100316
  3. DEEP CLEANSING WASH [Suspect]
     Indication: ACNE
     Route: 061
     Dates: start: 20110426

REACTIONS (5)
  - Pruritus [None]
  - Rash macular [None]
  - Swelling face [None]
  - Eye swelling [None]
  - Anaphylactic reaction [None]
